FAERS Safety Report 20950853 (Version 1)
Quarter: 2022Q2

REPORT INFORMATION
  Report Type: Spontaneous
  Country: US (occurrence: None)
  Receive Date: 20220610
  Receipt Date: 20220610
  Transmission Date: 20220721
  Serious: Yes (Other)
  Sender: FDA-Public Use
  Company Number: None

PATIENT
  Age: 43 Year
  Sex: Female
  Weight: 81 kg

DRUGS (13)
  1. BUPRENORPHINE HYDROCHLORIDE\NALOXONE HYDROCHLORIDE [Suspect]
     Active Substance: BUPRENORPHINE HYDROCHLORIDE\NALOXONE HYDROCHLORIDE
     Indication: Drug use disorder
     Dosage: OTHER QUANTITY : 1 7;?FREQUENCY : DAILY;?OTHER ROUTE : INSIDE OF CHEEK OR UNDER THE TONGUE;?
     Route: 050
     Dates: start: 20180402
  2. SUBOXONE [Concomitant]
     Active Substance: BUPRENORPHINE HYDROCHLORIDE\NALOXONE HYDROCHLORIDE
  3. LAMICTAL XR [Concomitant]
     Active Substance: LAMOTRIGINE
  4. XANAX [Concomitant]
     Active Substance: ALPRAZOLAM
  5. FOLIC ACID [Concomitant]
     Active Substance: FOLIC ACID
  6. MAGNESIUM [Concomitant]
     Active Substance: MAGNESIUM
  7. DICLOFENAV SODIUM [Concomitant]
  8. AMOXICILLIN [Concomitant]
     Active Substance: AMOXICILLIN
  9. VITAMIN D3 [Concomitant]
     Active Substance: CHOLECALCIFEROL
  10. VITAMIN C [Concomitant]
     Active Substance: ASCORBIC ACID
  11. Enfamom Prenatal Vitamin softgel [Concomitant]
  12. C0Q10 200mg [Concomitant]
  13. IMITREX [Concomitant]
     Active Substance: SUMATRIPTAN SUCCINATE

REACTIONS (5)
  - Tooth disorder [None]
  - Tooth extraction [None]
  - Tooth infection [None]
  - Dental caries [None]
  - Product label issue [None]

NARRATIVE: CASE EVENT DATE: 20210601
